FAERS Safety Report 16156334 (Version 1)
Quarter: 2019Q2

REPORT INFORMATION
  Report Type: Report from Study
  Country: MX (occurrence: MX)
  Receive Date: 20190404
  Receipt Date: 20190404
  Transmission Date: 20190711
  Serious: Yes (Death, Hospitalization)
  Sender: FDA-Public Use
  Company Number: MX-UCBSA-2018000609

PATIENT
  Age: 41 Year
  Sex: Male
  Weight: 98 kg

DRUGS (3)
  1. LEVETIRACETAM. [Suspect]
     Active Substance: LEVETIRACETAM
     Indication: SEIZURE
     Dosage: 1000 MG TABLETS, 1 TABLET EVERY 12 HRS
     Route: 048
     Dates: start: 20171102, end: 20171222
  2. TRILEPTAL [Concomitant]
     Active Substance: OXCARBAZEPINE
     Indication: SEIZURE
     Dosage: 300 MG, EVERY 8 HOUR
     Route: 048
     Dates: start: 201711, end: 20171222
  3. LEVETIRACETAM. [Suspect]
     Active Substance: LEVETIRACETAM
     Dosage: 1000 MG, 2X/DAY (BID)
     Route: 048
     Dates: start: 20180219, end: 20180313

REACTIONS (2)
  - Death [Fatal]
  - Seizure [Recovered/Resolved]

NARRATIVE: CASE EVENT DATE: 20171222
